FAERS Safety Report 16404268 (Version 2)
Quarter: 2019Q2

REPORT INFORMATION
  Report Type: Spontaneous
  Country: US (occurrence: US)
  Receive Date: 20190607
  Receipt Date: 20190619
  Transmission Date: 20190711
  Serious: No
  Sender: FDA-Public Use
  Company Number: US-PFIZER INC-2019239490

PATIENT
  Age: 54 Year
  Sex: Female

DRUGS (2)
  1. GABAPENTIN. [Concomitant]
     Active Substance: GABAPENTIN
     Dosage: UNK
     Dates: end: 201905
  2. IBRANCE [Suspect]
     Active Substance: PALBOCICLIB
     Indication: MALIGNANT CONNECTIVE TISSUE NEOPLASM
     Dosage: 125 MG, CYCLIC (TAKE 1 CAPSULE ON DAYS 1 THROUGH 21 OF A 28-DAY TREATMENT CYCLE)
     Route: 048
     Dates: start: 201905

REACTIONS (11)
  - Headache [Recovered/Resolved]
  - Nasal congestion [Unknown]
  - Emotional distress [Unknown]
  - Off label use [Unknown]
  - Product use in unapproved indication [Unknown]
  - Glossitis [Unknown]
  - Oral pain [Unknown]
  - Nausea [Not Recovered/Not Resolved]
  - Dyspnoea [Unknown]
  - Morning sickness [Unknown]
  - Alopecia [Unknown]

NARRATIVE: CASE EVENT DATE: 201905
